FAERS Safety Report 5099995-5 (Version None)
Quarter: 2006Q3

REPORT INFORMATION
  Report Type: 
  Country: None (occurrence: None)
  Receive Date: 20060906
  Receipt Date: 20060906
  Transmission Date: 20061208
  Serious: Yes (Hospitalization)
  Sender: FDA-Public Use
  Company Number: None

PATIENT
  Sex: Female
  Weight: 61.1 kg

DRUGS (3)
  1. CYTARABINE [Suspect]
     Dosage: 2 G/M2 IV OVER 2H Q 12H X 8 DOSES ON DAYS 1/4
     Route: 042
  2. ETOPOSIDE [Suspect]
     Dosage: 2400 MG
  3. G-CSF (FILGRASTIM, AMGEN) [Suspect]
     Dosage: 1800 MCG

REACTIONS (3)
  - ESCHERICHIA BACTERAEMIA [None]
  - INFECTION [None]
  - NEUTROPENIA [None]
